FAERS Safety Report 4732986-X (Version None)
Quarter: 2005Q3

REPORT INFORMATION
  Report Type: 
  Country: None (occurrence: None)
  Receive Date: 20050801
  Receipt Date: 20050721
  Transmission Date: 20060218
  Serious: Yes (Death, Hospitalization)
  Sender: FDA-Public Use
  Company Number: US-2004-030848

PATIENT
  Age: 77 Year
  Sex: Female
  Weight: 61.2 kg

DRUGS (19)
  1. CLIMARA [Suspect]
     Indication: HORMONE REPLACEMENT THERAPY
     Dosage: 0.05 MG/D, CONT, TRANSDERMAL
     Route: 062
     Dates: start: 19970601, end: 20011001
  2. MEDROXYPROGESTERONE ACETATE [Suspect]
     Indication: HORMONE REPLACEMENT THERAPY
     Dates: start: 19960101, end: 19970101
  3. VAGIFEM [Suspect]
     Indication: HORMONE REPLACEMENT THERAPY
     Dates: start: 20020101, end: 20020101
  4. FEMHRT [Suspect]
     Indication: HORMONE REPLACEMENT THERAPY
     Dosage: 1 TAB(S), 1X/DAY, ORAL
     Route: 048
     Dates: start: 20020101, end: 20020814
  5. MEDROXYPROGESTERONE ACETATE [Suspect]
     Indication: HORMONE REPLACEMENT THERAPY
     Dates: start: 19970101, end: 20020101
  6. PROVERA [Suspect]
     Dosage: SEE IMAGE
     Route: 048
     Dates: start: 19930101, end: 19960101
  7. PROVERA [Suspect]
     Dosage: SEE IMAGE
     Route: 048
     Dates: start: 19970601
  8. PREMARIN [Suspect]
     Indication: HORMONE REPLACEMENT THERAPY
     Dates: start: 19930101, end: 19960101
  9. FOSAMAX [Concomitant]
  10. ASPIRIN [Concomitant]
  11. MULTIVITAMINS (PANTHENOL, RETINOL) [Concomitant]
  12. CLARITIN [Concomitant]
  13. ADVICOR [Concomitant]
  14. NIASPAN [Concomitant]
  15. ZOCOR [Concomitant]
  16. BACTROBAN NASAL (MUPIROCIN CALDIUM) [Concomitant]
  17. CELEBREX [Concomitant]
  18. OXYCODONE/APAP (OXYCODONE) [Concomitant]
  19. SERAX [Concomitant]

REACTIONS (23)
  - ACUTE RESPIRATORY DISTRESS SYNDROME [None]
  - ANAEMIA POSTOPERATIVE [None]
  - ASCITES [None]
  - ATRIAL FIBRILLATION [None]
  - BENIGN BREAST NEOPLASM [None]
  - BLOOD TRIGLYCERIDES INCREASED [None]
  - BUNION OPERATION [None]
  - CARDIOPULMONARY FAILURE [None]
  - COLONIC FISTULA [None]
  - ENDOMETRIAL CANCER [None]
  - ENDOMETRIAL HYPERPLASIA [None]
  - FALLOPIAN TUBE CANCER METASTATIC [None]
  - GOITRE [None]
  - HYPOALBUMINAEMIA [None]
  - MALNUTRITION [None]
  - METASTASES TO OVARY [None]
  - METASTASES TO PERITONEUM [None]
  - MULTI-ORGAN FAILURE [None]
  - NAUSEA [None]
  - POSTMENOPAUSAL HAEMORRHAGE [None]
  - RENAL FAILURE [None]
  - RESPIRATORY FAILURE [None]
  - VOMITING [None]
